FAERS Safety Report 22068665 (Version 1)
Quarter: 2023Q1

REPORT INFORMATION
  Report Type: Spontaneous
  Country: US (occurrence: None)
  Receive Date: 20230306
  Receipt Date: 20230306
  Transmission Date: 20230418
  Serious: Yes (Hospitalization)
  Sender: FDA-Public Use
  Company Number: None

PATIENT
  Age: 23 Year
  Sex: Female
  Weight: 78.3 kg

DRUGS (2)
  1. PALIPERIDONE [Suspect]
     Active Substance: PALIPERIDONE
     Indication: Intermittent explosive disorder
     Dosage: FREQUENCY : DAILY;?
     Route: 048
     Dates: start: 20210722, end: 20211209
  2. INVEGA [Concomitant]
     Active Substance: PALIPERIDONE
     Dates: start: 20211209, end: 20230304

REACTIONS (1)
  - Unevaluable event [None]

NARRATIVE: CASE EVENT DATE: 20211209
